FAERS Safety Report 16364945 (Version 1)
Quarter: 2019Q2

REPORT INFORMATION
  Report Type: Spontaneous
  Country: GB (occurrence: GB)
  Receive Date: 20190529
  Receipt Date: 20190529
  Transmission Date: 20190711
  Serious: Yes (Other)
  Sender: FDA-Public Use
  Company Number: GB-AUROBINDO-AUR-APL-2019-029924

PATIENT

DRUGS (2)
  1. RAMIPRIL CAPSULE [Suspect]
     Active Substance: RAMIPRIL
     Indication: HYPERTENSION
     Dosage: 5 MILLIGRAM, UNK
     Route: 065
     Dates: start: 20181016
  2. AMLODIPINE [Concomitant]
     Active Substance: AMLODIPINE BESYLATE
     Indication: PRODUCT USED FOR UNKNOWN INDICATION
     Dosage: 1 DOSAGE FORM, ONCE A DAY
     Route: 065
     Dates: start: 20181016

REACTIONS (2)
  - Affective disorder [Recovered/Resolved]
  - Anger [Recovered/Resolved]

NARRATIVE: CASE EVENT DATE: 20181016
